FAERS Safety Report 19001497 (Version 1)
Quarter: 2021Q1

REPORT INFORMATION
  Report Type: Spontaneous
  Country: US (occurrence: US)
  Receive Date: 20210311
  Receipt Date: 20210311
  Transmission Date: 20210420
  Serious: Yes (Hospitalization)
  Sender: FDA-Public Use
  Company Number: None

PATIENT
  Age: 55 Year
  Sex: Male

DRUGS (6)
  1. XELJANZ [Suspect]
     Active Substance: TOFACITINIB CITRATE
     Indication: RHEUMATOID ARTHRITIS
     Route: 048
     Dates: start: 20191210
  2. ALBUTEROL. [Concomitant]
     Active Substance: ALBUTEROL
  3. DOXYCYCL HYC [Concomitant]
  4. BENZONATATE. [Concomitant]
     Active Substance: BENZONATATE
  5. PREDNISONE. [Concomitant]
     Active Substance: PREDNISONE
  6. IPRATROPIUM/SOL [Concomitant]

REACTIONS (2)
  - Therapy interrupted [None]
  - Pneumonia [None]
